FAERS Safety Report 11790138 (Version 3)
Quarter: 2016Q2

REPORT INFORMATION
  Report Type: Report from Study
  Country: AT (occurrence: AT)
  Receive Date: 20151201
  Receipt Date: 20160421
  Transmission Date: 20160815
  Serious: Yes (Hospitalization)
  Sender: FDA-Public Use
  Company Number: AT-EISAI MEDICAL RESEARCH-EC-2015-010175

PATIENT
  Age: 38 Year
  Sex: Male
  Weight: 79 kg

DRUGS (16)
  1. FYCOMPA [Interacting]
     Active Substance: PERAMPANEL
     Route: 048
     Dates: start: 20150119, end: 20151112
  2. ZONEGRAN [Interacting]
     Active Substance: ZONISAMIDE
     Indication: EPILEPSY
     Route: 048
     Dates: start: 20150521, end: 20150527
  3. VIMPAT [Concomitant]
     Active Substance: LACOSAMIDE
  4. FYCOMPA [Interacting]
     Active Substance: PERAMPANEL
     Route: 048
     Dates: start: 20151113, end: 20151116
  5. ZONEGRAN [Interacting]
     Active Substance: ZONISAMIDE
     Route: 048
     Dates: start: 20150706, end: 20150712
  6. ZONEGRAN [Interacting]
     Active Substance: ZONISAMIDE
     Route: 048
     Dates: start: 20150713, end: 201508
  7. FRISIUM [Concomitant]
     Active Substance: CLOBAZAM
  8. FYCOMPA [Suspect]
     Active Substance: PERAMPANEL
     Indication: EPILEPSY
     Route: 048
     Dates: start: 20141029, end: 20141111
  9. ZONEGRAN [Interacting]
     Active Substance: ZONISAMIDE
     Route: 048
     Dates: start: 20150528, end: 20150603
  10. ZONEGRAN [Interacting]
     Active Substance: ZONISAMIDE
     Route: 048
     Dates: start: 20150604, end: 20150610
  11. ZONEGRAN [Interacting]
     Active Substance: ZONISAMIDE
     Route: 048
     Dates: start: 20150629, end: 20150705
  12. ZONEGRAN [Interacting]
     Active Substance: ZONISAMIDE
     Dosage: DOWN TITRATED (50 MG AT THE TIME OF DISCONTINUATION)
     Route: 048
     Dates: start: 201508, end: 20150814
  13. ZONEGRAN [Interacting]
     Active Substance: ZONISAMIDE
     Route: 048
     Dates: start: 20150611, end: 20150622
  14. ZONEGRAN [Interacting]
     Active Substance: ZONISAMIDE
     Route: 048
     Dates: start: 20150623, end: 20150628
  15. FYCOMPA [Interacting]
     Active Substance: PERAMPANEL
     Route: 048
     Dates: start: 20141112, end: 20141125
  16. FYCOMPA [Interacting]
     Active Substance: PERAMPANEL
     Route: 048
     Dates: start: 20141126, end: 20150118

REACTIONS (2)
  - Acute psychosis [Recovered/Resolved]
  - Drug interaction [Recovered/Resolved]

NARRATIVE: CASE EVENT DATE: 20150806
